FAERS Safety Report 17527749 (Version 1)
Quarter: 2020Q1

REPORT INFORMATION
  Report Type: Spontaneous
  Country: US (occurrence: US)
  Receive Date: 20200311
  Receipt Date: 20200311
  Transmission Date: 20200409
  Serious: Yes (Death)
  Sender: FDA-Public Use
  Company Number: US-PFIZER INC-2020106701

PATIENT
  Age: 14 Year
  Sex: Male
  Weight: 75 kg

DRUGS (10)
  1. POTASSIUM CHLORIDE. [Suspect]
     Active Substance: POTASSIUM CHLORIDE
     Indication: MINERAL SUPPLEMENTATION
     Dosage: UNK
  2. NALOXONE [Concomitant]
     Active Substance: NALOXONE
     Indication: MENTAL STATUS CHANGES
     Dosage: UNK (A DOSE)
  3. DANTROLENE. [Concomitant]
     Active Substance: DANTROLENE SODIUM
     Indication: HYPERGLYCAEMIC HYPEROSMOLAR NONKETOTIC SYNDROME
     Dosage: UNK
  4. NALOXONE [Concomitant]
     Active Substance: NALOXONE
     Dosage: UNK (SECOND DOSE)
  5. SODIUM CHLORIDE. [Concomitant]
     Active Substance: SODIUM CHLORIDE
     Dosage: UNK (300-500 ML/HR)
  6. SODIUM CHLORIDE. [Concomitant]
     Active Substance: SODIUM CHLORIDE
     Indication: DIABETIC KETOACIDOSIS
     Dosage: UNK (TWO 1-L NORMAL SALINE BOLUSES)
     Route: 040
  7. INSULIN [Concomitant]
     Active Substance: INSULIN NOS
     Dosage: 0.025 IU/KG, UNK (RESTARTED AT 3 AM THE NEXT MORNING)
  8. HYDRATION VITAMIN [Concomitant]
     Indication: HYPERGLYCAEMIC HYPEROSMOLAR NONKETOTIC SYNDROME
     Dosage: UNK (NORMAL SALINE AT 300-500 ML/HR)
  9. DANTROLENE. [Concomitant]
     Active Substance: DANTROLENE SODIUM
     Indication: HYPERTHERMIA MALIGNANT
  10. INSULIN [Concomitant]
     Active Substance: INSULIN NOS
     Indication: DIABETIC KETOACIDOSIS
     Dosage: UNK (INFUSION, PER HOUR)

REACTIONS (1)
  - Drug ineffective [Fatal]
